FAERS Safety Report 8986190 (Version 1)
Quarter: 2012Q4

REPORT INFORMATION
  Report Type: Spontaneous
  Country: US (occurrence: None)
  Receive Date: 20121219
  Receipt Date: 20121219
  Transmission Date: 20130627
  Serious: No
  Sender: FDA-Public Use
  Company Number: None

PATIENT

DRUGS (3)
  1. CARBOPLATIN [Suspect]
  2. TAXOL [Suspect]
  3. BEVACIZUMAB [Suspect]

REACTIONS (6)
  - Nausea [None]
  - Vomiting [None]
  - Ileus [None]
  - Hypotension [None]
  - Acidosis [None]
  - Intestinal perforation [None]
